FAERS Safety Report 14959266 (Version 1)
Quarter: 2018Q2

REPORT INFORMATION
  Report Type: Spontaneous
  Country: CN (occurrence: CN)
  Receive Date: 20180531
  Receipt Date: 20180531
  Transmission Date: 20180711
  Serious: Yes (Other)
  Sender: FDA-Public Use
  Company Number: CN-PFIZER INC-2018219508

PATIENT
  Age: 88 Year
  Sex: Male
  Weight: 70 kg

DRUGS (5)
  1. ALPROSTADIL. [Concomitant]
     Active Substance: ALPROSTADIL
     Indication: POOR PERIPHERAL CIRCULATION
     Dosage: 10 UG, 1X/DAY
     Route: 041
     Dates: start: 20180323, end: 20180405
  2. ZYVOX [Suspect]
     Active Substance: LINEZOLID
     Indication: INFECTION
     Dosage: 0.6 G, 2X/DAY
     Route: 041
     Dates: start: 20180403, end: 20180405
  3. SODIUM CHLORIDE. [Concomitant]
     Active Substance: SODIUM CHLORIDE
     Indication: VEHICLE SOLUTION USE
     Dosage: 100 ML, 1X/DAY
     Dates: start: 20180323, end: 20180405
  4. SODIUM CHLORIDE. [Concomitant]
     Active Substance: SODIUM CHLORIDE
     Dosage: 250 ML, 3X/DAY (EVERY 8 HOURS)
     Dates: start: 20180403, end: 20180405
  5. SULPERAZON [Concomitant]
     Active Substance: CEFOPERAZONE SODIUM\SULBACTAM SODIUM
     Indication: INFECTION
     Dosage: 2 G, 3X/DAY
     Route: 041
     Dates: start: 20180401, end: 20180405

REACTIONS (4)
  - Nausea [Recovered/Resolved]
  - Vomiting [Recovered/Resolved]
  - Blood pressure increased [Recovering/Resolving]
  - Abdominal discomfort [Recovered/Resolved]

NARRATIVE: CASE EVENT DATE: 20180404
